FAERS Safety Report 8486999-5 (Version None)
Quarter: 2012Q3

REPORT INFORMATION
  Report Type: 
  Country: None (occurrence: None)
  Receive Date: 20120704
  Receipt Date: 20120629
  Transmission Date: 20120928
  Serious: Yes (Other)
  Sender: FDA-Public Use
  Company Number: PHHY2012JP056398

PATIENT
  Age: 45 Year
  Sex: Female

DRUGS (7)
  1. MYCOPHENOLATE MOFETIL [Concomitant]
     Indication: RENAL TRANSPLANT
  2. BASILIXIMAB [Suspect]
     Indication: RENAL TRANSPLANT
  3. IMMUNE GLOBULIN NOS [Concomitant]
     Indication: RENAL TRANSPLANT
     Dosage: 5 G, UNK
     Route: 042
  4. RITUXIMAB [Concomitant]
     Indication: RENAL TRANSPLANT
     Dosage: 70-500 MG
  5. METHYLPREDNISOLONE [Concomitant]
     Dosage: 4 MG, UNK
  6. TACROLIMUS [Concomitant]
     Indication: RENAL TRANSPLANT
  7. METHYLPREDNISOLONE [Concomitant]
     Indication: RENAL TRANSPLANT
     Dosage: 500 MG, UNK

REACTIONS (4)
  - CHRONIC ALLOGRAFT NEPHROPATHY [None]
  - KIDNEY TRANSPLANT REJECTION [None]
  - GLOMERULONEPHRITIS [None]
  - CAPILLARITIS [None]
